FAERS Safety Report 9930640 (Version 1)
Quarter: 2014Q1

REPORT INFORMATION
  Report Type: Spontaneous
  Country: US (occurrence: US)
  Receive Date: 20140227
  Receipt Date: 20140227
  Transmission Date: 20141002
  Serious: No
  Sender: FDA-Public Use
  Company Number: US-AMGEN-USASP2013091277

PATIENT
  Age: 64 Year
  Sex: Female
  Weight: 102.4 kg

DRUGS (1)
  1. ENBREL [Suspect]
     Indication: PSORIATIC ARTHROPATHY
     Dosage: 50 MG, QWK
     Route: 058
     Dates: start: 201307

REACTIONS (5)
  - Drug ineffective [Unknown]
  - Malaise [Unknown]
  - Pain in extremity [Unknown]
  - Pain [Unknown]
  - Influenza [Unknown]
